FAERS Safety Report 18409329 (Version 1)
Quarter: 2020Q4

REPORT INFORMATION
  Report Type: Spontaneous
  Country: GB (occurrence: GB)
  Receive Date: 20201021
  Receipt Date: 20201021
  Transmission Date: 20210114
  Serious: Yes (Other)
  Sender: FDA-Public Use
  Company Number: GB-TEVA-2020-GB-1839778

PATIENT
  Age: 39 Year
  Sex: Female
  Weight: 100 kg

DRUGS (2)
  1. PROCHLORPERAZINE. [Concomitant]
     Active Substance: PROCHLORPERAZINE
     Indication: MIGRAINE
     Dosage: 4 DOSAGE FORMS DAILY;
     Dates: start: 20200617, end: 20200715
  2. SUMATRIPTAN. [Suspect]
     Active Substance: SUMATRIPTAN
     Dosage: TAKE 1 TABLET A S DIRECTED, A SECOND DOSE MAYB., UNIT DOSE : 50 MG
     Route: 048
     Dates: start: 20200617

REACTIONS (1)
  - Lip swelling [Recovered/Resolved]

NARRATIVE: CASE EVENT DATE: 20200915
